FAERS Safety Report 10273711 (Version 1)
Quarter: 2014Q3

REPORT INFORMATION
  Report Type: Report from Study
  Country: US (occurrence: US)
  Receive Date: 20140702
  Receipt Date: 20140702
  Transmission Date: 20150326
  Serious: Yes (Other)
  Sender: FDA-Public Use
  Company Number: US-BAYER-2014-097356

PATIENT
  Age: 47 Year
  Sex: Male
  Weight: 117.91 kg

DRUGS (1)
  1. STIVARGA [Suspect]
     Active Substance: REGORAFENIB
     Indication: COLON CANCER METASTATIC
     Dosage: 160 MG, QD
     Route: 048
     Dates: start: 20140529, end: 20140610

REACTIONS (2)
  - Neuropathy peripheral [None]
  - Skin discolouration [None]

NARRATIVE: CASE EVENT DATE: 20140610
